FAERS Safety Report 7670006-8 (Version None)
Quarter: 2011Q3

REPORT INFORMATION
  Report Type: 
  Country: None (occurrence: None)
  Receive Date: 20110808
  Receipt Date: 20110804
  Transmission Date: 20111222
  Serious: Yes (Life-Threatening, Hospitalization, Other)
  Sender: FDA-Public Use
  Company Number: DE-ASTRAZENECA-2011SE34674

PATIENT
  Age: 71 Year
  Sex: Female
  Weight: 120 kg

DRUGS (4)
  1. UNACID [Suspect]
     Dosage: 2-4 FILM-COATED TABLETS AT 375 MG DAILY PER OS
     Route: 048
     Dates: start: 20110405, end: 20110408
  2. PIPERACILLIN AND TAZOBACTAM [Suspect]
     Dosage: 2-3X 4.5 G DAILY I.V.
     Route: 042
     Dates: start: 20110408, end: 20110414
  3. PROPOFOL [Suspect]
     Route: 042
     Dates: start: 20110406, end: 20110406
  4. SONOVUE [Suspect]
     Route: 042
     Dates: start: 20110406, end: 20110406

REACTIONS (1)
  - RENAL FAILURE ACUTE [None]
